FAERS Safety Report 5564053-X (Version None)
Quarter: 2007Q4

REPORT INFORMATION
  Report Type: 
  Country: None (occurrence: None)
  Receive Date: 20071217
  Receipt Date: 20071207
  Transmission Date: 20080405
  Serious: Yes (Hospitalization)
  Sender: FDA-Public Use
  Company Number: FR-BOEHRINGER INGELHEIM PHARMACEUTICALS, INC.-2007-FF-01153FF

PATIENT
  Age: 68 Year
  Sex: Female

DRUGS (8)
  1. SPIRIVA [Suspect]
     Route: 055
  2. TERCIAN [Concomitant]
  3. ATHYMIL [Concomitant]
  4. VALIUM [Concomitant]
  5. ENDOTHELON [Concomitant]
  6. ROVA [Concomitant]
  7. DIANTALVIC [Concomitant]
  8. MEDROL [Concomitant]

REACTIONS (2)
  - FACE OEDEMA [None]
  - PULMONARY OEDEMA [None]
